FAERS Safety Report 4815661-2 (Version None)
Quarter: 2005Q4

REPORT INFORMATION
  Report Type: 
  Country: None (occurrence: None)
  Receive Date: 20051027
  Receipt Date: 20051017
  Transmission Date: 20060501
  Serious: Yes (Hospitalization)
  Sender: FDA-Public Use
  Company Number: 2005143880

PATIENT
  Age: 52 Year
  Sex: Male

DRUGS (6)
  1. SOLU-MEDROL [Suspect]
     Indication: RENAL TRANSPLANT
     Dosage: 50 MG (1 IN D), INTRAVENOUS
     Route: 042
     Dates: start: 20050915
  2. PLAVIX [Suspect]
     Indication: STENT PLACEMENT
     Dosage: 45 MG (1 D), ORAL
     Route: 048
     Dates: end: 20050924
  3. CELLCEPT [Concomitant]
  4. ASPEGIC 1000 [Concomitant]
  5. NEXIUM [Concomitant]
  6. PREDNISONE [Concomitant]

REACTIONS (4)
  - DUODENAL ULCER HAEMORRHAGE [None]
  - RENAL FAILURE CHRONIC [None]
  - RENAL TRANSPLANT [None]
  - TRANSPLANT REJECTION [None]
